FAERS Safety Report 10378655 (Version 2)
Quarter: 2014Q3

REPORT INFORMATION
  Report Type: Spontaneous
  Country: US (occurrence: US)
  Receive Date: 20140812
  Receipt Date: 20140926
  Transmission Date: 20150326
  Serious: Yes (Hospitalization)
  Sender: FDA-Public Use
  Company Number: US-BAYER-2014-117807

PATIENT
  Age: 38 Year
  Sex: Female
  Weight: 73.92 kg

DRUGS (8)
  1. MIRENA [Suspect]
     Active Substance: LEVONORGESTREL
     Indication: CONTRACEPTION
     Dosage: 20 MCG/24HR, CONT
     Route: 015
     Dates: start: 200610, end: 20120904
  2. VALIUM [Concomitant]
     Active Substance: DIAZEPAM
  3. LORTAB [Concomitant]
     Active Substance: ACETAMINOPHEN\HYDROCODONE BITARTRATE
  4. ALEVE [Concomitant]
     Active Substance: NAPROXEN SODIUM
     Dosage: UNK
     Dates: start: 20111115
  5. PREMPRO [Concomitant]
     Active Substance: ESTROGENS, CONJUGATED\MEDROXYPROGESTERONE ACETATE
     Indication: HORMONE REPLACEMENT THERAPY
  6. MACROBID [Concomitant]
     Active Substance: NITROFURANTOIN\NITROFURANTOIN MONOHYDRATE
  7. MOTRIN [Concomitant]
     Active Substance: IBUPROFEN
  8. LIDOCAINE. [Concomitant]
     Active Substance: LIDOCAINE

REACTIONS (13)
  - Device difficult to use [None]
  - Infertility female [None]
  - Uterine perforation [None]
  - Device misuse [None]
  - Anxiety [None]
  - Injury [None]
  - Menorrhagia [None]
  - Device issue [None]
  - Emotional distress [None]
  - Emotional distress [None]
  - Amenorrhoea [None]
  - Medical device pain [None]
  - Dyspareunia [None]

NARRATIVE: CASE EVENT DATE: 20111108
